FAERS Safety Report 8504969-5 (Version None)
Quarter: 2012Q3

REPORT INFORMATION
  Report Type: 
  Country: None (occurrence: None)
  Receive Date: 20120712
  Receipt Date: 20120704
  Transmission Date: 20120928
  Serious: Yes (Hospitalization)
  Sender: FDA-Public Use
  Company Number: DE-ELI_LILLY_AND_COMPANY-DE201207001830

PATIENT
  Age: 91 Year
  Sex: Male
  Weight: 79 kg

DRUGS (3)
  1. ASPIRIN [Concomitant]
  2. EFFIENT [Suspect]
     Dosage: 10 MG, QD
     Route: 048
     Dates: start: 20110630
  3. EFFIENT [Suspect]
     Dosage: 60 MG, UNK
     Route: 048
     Dates: start: 20110629, end: 20110629

REACTIONS (1)
  - ANGINA PECTORIS [None]
